FAERS Safety Report 11779629 (Version 2)
Quarter: 2015Q4

REPORT INFORMATION
  Report Type: Report from Study
  Country: US (occurrence: US)
  Receive Date: 20151125
  Receipt Date: 20151202
  Transmission Date: 20160304
  Serious: Yes (Other)
  Sender: FDA-Public Use
  Company Number: US-ABBVIE-15P-163-1506473-00

PATIENT
  Age: 30 Year
  Sex: Female

DRUGS (2)
  1. LUPRON DEPOT [Suspect]
     Active Substance: LEUPROLIDE ACETATE
     Indication: ENDOMETRIOSIS
     Route: 050
     Dates: start: 2005
  2. LUPRON DEPOT [Suspect]
     Active Substance: LEUPROLIDE ACETATE
     Route: 030
     Dates: start: 20150811, end: 20150811

REACTIONS (9)
  - Depression [Not Recovered/Not Resolved]
  - Endometriosis [Recovered/Resolved]
  - Pelvic pain [Unknown]
  - Hysterectomy [Unknown]
  - Pelvic adhesions [Recovered/Resolved]
  - Pelvic pain [Unknown]
  - Stress [Unknown]
  - Abdominal pain [Unknown]
  - Tympanoplasty [Recovered/Resolved]

NARRATIVE: CASE EVENT DATE: 200711
